FAERS Safety Report 13323119 (Version 4)
Quarter: 2017Q2

REPORT INFORMATION
  Report Type: Report from Study
  Country: US (occurrence: US)
  Receive Date: 20170310
  Receipt Date: 20170607
  Transmission Date: 20170830
  Serious: Yes (Hospitalization, Other)
  Sender: FDA-Public Use
  Company Number: US-BAYER-2017-038102

PATIENT
  Age: 58 Year
  Sex: Male

DRUGS (28)
  1. ZINC. [Concomitant]
     Active Substance: ZINC
  2. VITAMIN D3 [Concomitant]
     Active Substance: CHOLECALCIFEROL
  3. VITAMIN B12 [Concomitant]
     Active Substance: CYANOCOBALAMIN
  4. ACEPROMAZINE MALEATE [Concomitant]
     Active Substance: ACEPROMAZINE MALEATE
  5. LANTUS [Concomitant]
     Active Substance: INSULIN GLARGINE
  6. ASPIRIN. [Concomitant]
     Active Substance: ASPIRIN
  7. STIVARGA [Suspect]
     Active Substance: REGORAFENIB
     Indication: RECTAL CANCER
     Dosage: 120 MG, QD
     Route: 048
     Dates: start: 20170222, end: 20170225
  8. VITAMIN B6 [Concomitant]
     Active Substance: PYRIDOXINE HYDROCHLORIDE
  9. PRILOSEC [Concomitant]
     Active Substance: OMEPRAZOLE MAGNESIUM
  10. MAGNESIUM OXIDE. [Concomitant]
     Active Substance: MAGNESIUM OXIDE
  11. STIVARGA [Suspect]
     Active Substance: REGORAFENIB
     Indication: RECTAL CANCER
     Dosage: 120 MG, QD
     Route: 048
     Dates: start: 20170301, end: 201703
  12. LACTULOSE. [Concomitant]
     Active Substance: LACTULOSE
  13. FISH OIL [Concomitant]
     Active Substance: FISH OIL
  14. STIVARGA [Suspect]
     Active Substance: REGORAFENIB
     Indication: RECTAL CANCER
     Dosage: DAILY DOSE 160 MG
     Route: 048
     Dates: start: 201703, end: 2017
  15. ZOFRAN [Concomitant]
     Active Substance: ONDANSETRON HYDROCHLORIDE
  16. METFORMIN HCL [Concomitant]
     Active Substance: METFORMIN HYDROCHLORIDE
  17. AQUAPHOR ANTIBIOTIC [Concomitant]
  18. MIRALAX [Concomitant]
     Active Substance: POLYETHYLENE GLYCOL 3350
  19. CINNAMON. [Concomitant]
     Active Substance: CINNAMON
  20. LISINOPRIL. [Concomitant]
     Active Substance: LISINOPRIL
  21. VITAMIN C [Concomitant]
     Active Substance: ASCORBIC ACID
  22. PROCHLORPERAZINE MALEATE. [Concomitant]
     Active Substance: PROCHLORPERAZINE MALEATE
  23. NOVOLOG [Concomitant]
     Active Substance: INSULIN ASPART
  24. KEFLEX [Concomitant]
     Active Substance: CEPHALEXIN
  25. FOLIC ACID. [Concomitant]
     Active Substance: FOLIC ACID
  26. LISINOPRIL AND HYDROCHLOROTHIAZIDE [Concomitant]
     Active Substance: HYDROCHLOROTHIAZIDE\LISINOPRIL
  27. FENOFIBRATE. [Concomitant]
     Active Substance: FENOFIBRATE
  28. ANUSOL HC [Concomitant]
     Active Substance: HYDROCORTISONE

REACTIONS (14)
  - Dyspepsia [None]
  - Abdominal pain upper [None]
  - Vitamin D decreased [None]
  - Rectal cancer [None]
  - Pancreatitis [None]
  - Abdominal distension [None]
  - Muscle spasms [None]
  - Constipation [Not Recovered/Not Resolved]
  - Back pain [None]
  - Abdominal pain upper [Not Recovered/Not Resolved]
  - Abdominal pain upper [None]
  - Fatigue [None]
  - Asthenia [None]
  - Dry skin [Not Recovered/Not Resolved]

NARRATIVE: CASE EVENT DATE: 20170223
